FAERS Safety Report 8532222-2 (Version None)
Quarter: 2012Q3

REPORT INFORMATION
  Report Type: 
  Country: None (occurrence: None)
  Receive Date: 20120723
  Receipt Date: 20120713
  Transmission Date: 20120928
  Serious: Yes (Other)
  Sender: FDA-Public Use
  Company Number: DE-ROCHE-1090523

PATIENT
  Age: 59 Year
  Sex: Female

DRUGS (11)
  1. ERGOCALCIFEROL [Concomitant]
     Dates: start: 20020101
  2. AMITRIPTYLINE HYDROCHLORIDE [Concomitant]
     Dates: start: 19920101
  3. NALTREXONA [Concomitant]
     Dates: start: 20100301
  4. ACTEMRA [Suspect]
     Indication: RHEUMATOID ARTHRITIS
     Route: 042
     Dates: start: 20110830
  5. CALCIUM [Concomitant]
     Dates: start: 20020101
  6. SPIRONOLACTONE [Concomitant]
     Dates: start: 20020101
  7. LYRICA [Concomitant]
     Dates: start: 20040101
  8. LEVOTHYROXINE SODIUM [Concomitant]
     Dates: start: 19920101
  9. CYMBALTA [Concomitant]
     Dates: start: 20060101
  10. TILIDINE [Concomitant]
     Dates: start: 20110606
  11. TILIDINE [Concomitant]

REACTIONS (4)
  - EPISTAXIS [None]
  - ORAL MUCOSAL EXFOLIATION [None]
  - SWOLLEN TONGUE [None]
  - HYPERSENSITIVITY [None]
